FAERS Safety Report 12255658 (Version 2)
Quarter: 2016Q2

REPORT INFORMATION
  Report Type: Spontaneous
  Country: RU (occurrence: RU)
  Receive Date: 20160412
  Receipt Date: 20160426
  Transmission Date: 20160815
  Serious: Yes (Hospitalization, Other)
  Sender: FDA-Public Use
  Company Number: RU-ROCHE-1739176

PATIENT
  Sex: Male

DRUGS (2)
  1. PEGASYS [Suspect]
     Active Substance: PEGINTERFERON ALFA-2A
     Indication: HEPATITIS C
     Route: 058
     Dates: start: 201504, end: 20160318
  2. RIBAVIRIN. [Suspect]
     Active Substance: RIBAVIRIN
     Indication: HEPATITIS C
     Route: 065
     Dates: start: 201504, end: 20160318

REACTIONS (11)
  - Leukoencephalopathy [Not Recovered/Not Resolved]
  - Pyramidal tract syndrome [Recovered/Resolved]
  - Leukopenia [Not Recovered/Not Resolved]
  - Extrapyramidal disorder [Recovered/Resolved]
  - Parkinsonism [Recovering/Resolving]
  - Gait disturbance [Recovering/Resolving]
  - CSF protein increased [Not Recovered/Not Resolved]
  - Lymphopenia [Not Recovered/Not Resolved]
  - Pseudobulbar palsy [Recovering/Resolving]
  - Hepatic enzyme decreased [Not Recovered/Not Resolved]
  - Dysphonia [Recovering/Resolving]

NARRATIVE: CASE EVENT DATE: 201603
